FAERS Safety Report 12215830 (Version 1)
Quarter: 2016Q1

REPORT INFORMATION
  Report Type: Spontaneous
  Country: US (occurrence: US)
  Receive Date: 20160328
  Receipt Date: 20160328
  Transmission Date: 20160526
  Serious: No
  Sender: FDA-Public Use
  Company Number: US-BAYER-2016-057964

PATIENT
  Age: 69 Year
  Sex: Male

DRUGS (1)
  1. EOVIST [Suspect]
     Active Substance: GADOXETATE DISODIUM
     Indication: NUCLEAR MAGNETIC RESONANCE IMAGING LIVER
     Dosage: 20 ML, ONCE
     Route: 042
     Dates: start: 20160216, end: 20160216

REACTIONS (3)
  - Dizziness [Recovered/Resolved]
  - Nausea [Recovered/Resolved]
  - Dyspnoea [Recovered/Resolved]

NARRATIVE: CASE EVENT DATE: 20160216
